FAERS Safety Report 13124593 (Version 2)
Quarter: 2017Q1

REPORT INFORMATION
  Report Type: Spontaneous
  Country: ES (occurrence: ES)
  Receive Date: 20170118
  Receipt Date: 20170124
  Transmission Date: 20170428
  Serious: Yes (Death, Hospitalization)
  Sender: FDA-Public Use
  Company Number: ES-AMGEN-ESPNI2017005711

PATIENT
  Age: 69 Year
  Sex: Male

DRUGS (8)
  1. DEXAMETASONA [Suspect]
     Active Substance: DEXAMETHASONE
     Indication: METASTASES TO LIVER
  2. OXALIPLATINO [Suspect]
     Active Substance: OXALIPLATIN
     Indication: COLON CANCER
     Dosage: 120 MG, UNK
     Route: 042
     Dates: start: 20151110, end: 20151110
  3. DEXAMETASONA [Suspect]
     Active Substance: DEXAMETHASONE
     Indication: COLON CANCER
     Dosage: 8MG CADA 24 HORAS
     Route: 048
     Dates: start: 20151111, end: 20151113
  4. OXALIPLATINO [Suspect]
     Active Substance: OXALIPLATIN
     Indication: METASTASES TO LIVER
  5. FLUOROURACILO [Suspect]
     Active Substance: FLUOROURACIL
     Indication: METASTASES TO LIVER
  6. VECTIBIX [Suspect]
     Active Substance: PANITUMUMAB
     Indication: COLON CANCER
     Dosage: 264.4 MG, UNK
     Route: 042
     Dates: start: 20151110, end: 20151110
  7. FLUOROURACILO [Suspect]
     Active Substance: FLUOROURACIL
     Indication: COLON CANCER
     Dosage: BOLO 568MG FOLLOWED OF 23400MG IN 46 HOURS
     Route: 042
     Dates: start: 20151110, end: 20151112
  8. VECTIBIX [Suspect]
     Active Substance: PANITUMUMAB
     Indication: METASTASES TO LIVER

REACTIONS (2)
  - Hyperamylasaemia [Recovered/Resolved]
  - Gastroenteritis [Fatal]

NARRATIVE: CASE EVENT DATE: 20151117
